FAERS Safety Report 4973380-6 (Version None)
Quarter: 2006Q2

REPORT INFORMATION
  Report Type: 
  Country: None (occurrence: None)
  Receive Date: 20060413
  Receipt Date: 20060413
  Transmission Date: 20061013
  Serious: Yes (Hospitalization, Other)
  Sender: FDA-Public Use
  Company Number: None

PATIENT
  Sex: Male
  Weight: 31.8 kg

DRUGS (1)
  1. ACCUTANE [Suspect]
     Dosage: 180 MG
     Dates: start: 20060310, end: 20060323

REACTIONS (4)
  - DIZZINESS [None]
  - ERYTHEMA [None]
  - FEELING COLD [None]
  - STREPTOCOCCAL BACTERAEMIA [None]
